FAERS Safety Report 19375977 (Version 2)
Quarter: 2021Q2

REPORT INFORMATION
  Report Type: Spontaneous
  Country: GB (occurrence: GB)
  Receive Date: 20210604
  Receipt Date: 20210628
  Transmission Date: 20210717
  Serious: Yes (Death, Hospitalization, Other)
  Sender: FDA-Public Use
  Company Number: GB-ELI_LILLY_AND_COMPANY-GB202106001079

PATIENT
  Age: 54 Year
  Sex: Female

DRUGS (2)
  1. FULVESTRANT. [Suspect]
     Active Substance: FULVESTRANT
     Indication: BREAST CANCER
     Dosage: 500 MG, UNKNOWN
     Route: 030
  2. ABEMACICLIB 150MG [Suspect]
     Active Substance: ABEMACICLIB
     Indication: BREAST CANCER
     Dosage: 150 MG, BID
     Route: 048

REACTIONS (14)
  - Vision blurred [Unknown]
  - Headache [Unknown]
  - Cerebral disorder [Unknown]
  - Brain herniation [Unknown]
  - Pulmonary oedema [Unknown]
  - Jaundice [Unknown]
  - Portal vein thrombosis [Fatal]
  - Haemorrhagic infarction [Unknown]
  - Cerebellar haemorrhage [Unknown]
  - Hepatic failure [Fatal]
  - Pulmonary congestion [Unknown]
  - Intracranial pressure increased [Unknown]
  - Brain oedema [Fatal]
  - Hyperpyrexia [Unknown]
